FAERS Safety Report 23048479 (Version 1)
Quarter: 2023Q4

REPORT INFORMATION
  Report Type: Spontaneous
  Country: US (occurrence: US)
  Receive Date: 20231010
  Receipt Date: 20231010
  Transmission Date: 20240109
  Serious: No
  Sender: FDA-Public Use
  Company Number: US-UNITED THERAPEUTICS-UNT-2023-028141

PATIENT
  Sex: Female

DRUGS (5)
  1. REMODULIN [Suspect]
     Active Substance: TREPROSTINIL
     Indication: Pulmonary arterial hypertension
     Dosage: 0.09942 ?G/KG (AT PUMP RATE 34UL/HR, USING 2.8ML REMODULIN), CONTINUING
     Route: 058
     Dates: end: 20230929
  2. REMODULIN [Suspect]
     Active Substance: TREPROSTINIL
     Dosage: 0.04971 ?G/KG (AT PUMP RATE 17UL/HR), CONTINUING
     Route: 058
     Dates: start: 20231002
  3. REMODULIN [Suspect]
     Active Substance: TREPROSTINIL
     Dosage: UNK, CONTINUING
     Route: 058
     Dates: start: 202104
  4. TRIAMCINOLONE ACETONIDE [Concomitant]
     Active Substance: TRIAMCINOLONE ACETONIDE
     Indication: Product used for unknown indication
     Dosage: UNK
     Route: 065
  5. LIDOCAINE AND PRILOCAINE [Concomitant]
     Active Substance: LIDOCAINE\PRILOCAINE
     Indication: Product used for unknown indication
     Dosage: UNK
     Route: 065

REACTIONS (6)
  - Pallor [Unknown]
  - Device use error [Recovered/Resolved]
  - Product distribution issue [Recovered/Resolved]
  - Device wireless communication issue [Recovered/Resolved]
  - Device malfunction [Recovered/Resolved]
  - Device power source issue [Unknown]

NARRATIVE: CASE EVENT DATE: 20230101
